FAERS Safety Report 21944311 (Version 1)
Quarter: 2023Q1

REPORT INFORMATION
  Report Type: Spontaneous
  Country: JP (occurrence: JP)
  Receive Date: 20230202
  Receipt Date: 20230202
  Transmission Date: 20230418
  Serious: Yes (Other)
  Sender: FDA-Public Use
  Company Number: JP-CHUGAI-2023002561

PATIENT
  Age: 86 Year
  Sex: Male

DRUGS (2)
  1. TECENTRIQ [Suspect]
     Active Substance: ATEZOLIZUMAB
     Indication: Hepatocellular carcinoma
     Route: 041
  2. AVASTIN [Suspect]
     Active Substance: BEVACIZUMAB
     Indication: Hepatocellular carcinoma
     Route: 041

REACTIONS (6)
  - Cholangitis [Unknown]
  - Nutritional condition abnormal [Unknown]
  - Child-Pugh-Turcotte score increased [Unknown]
  - Infection [Unknown]
  - C-reactive protein increased [Unknown]
  - Blood albumin decreased [Unknown]
